FAERS Safety Report 7737174-0 (Version None)
Quarter: 2011Q3

REPORT INFORMATION
  Report Type: 
  Country: None (occurrence: None)
  Receive Date: 20110908
  Receipt Date: 20110830
  Transmission Date: 20111222
  Serious: Yes (Other)
  Sender: FDA-Public Use
  Company Number: US-BAXTER-2011BH028114

PATIENT

DRUGS (1)
  1. HEPARIN SODIUM INJECTION [Suspect]
     Indication: THROMBOSIS PROPHYLAXIS
     Route: 058

REACTIONS (4)
  - SUBARACHNOID HAEMORRHAGE [None]
  - INTRACRANIAL PRESSURE INCREASED [None]
  - BRAIN OEDEMA [None]
  - CONDITION AGGRAVATED [None]
